FAERS Safety Report 4862041-X (Version None)
Quarter: 2005Q4

REPORT INFORMATION
  Report Type: 
  Country: None (occurrence: None)
  Receive Date: 20051221
  Receipt Date: 20051213
  Transmission Date: 20060501
  Serious: Yes (Death, Hospitalization, Other)
  Sender: FDA-Public Use
  Company Number: GB-JNJFOC-20051203318

PATIENT
  Sex: Male
  Weight: 87 kg

DRUGS (12)
  1. REMICADE [Suspect]
     Indication: RHEUMATOID ARTHRITIS
     Route: 042
  2. METHOTREXATE [Concomitant]
     Route: 065
  3. PREDNISOLONE [Concomitant]
     Route: 065
  4. ASPIRIN [Concomitant]
     Route: 065
  5. ATENOLOL [Concomitant]
     Route: 065
  6. BENDROFLUAZIDE [Concomitant]
     Route: 065
  7. GLIBENCLAMIDE [Concomitant]
     Route: 065
  8. IRBESARTAN [Concomitant]
     Route: 065
  9. METFORMIN [Concomitant]
     Route: 065
  10. NOVONORM [Concomitant]
     Route: 065
  11. RANITIDINE [Concomitant]
     Route: 065
  12. SIMVASTATIN [Concomitant]
     Route: 065

REACTIONS (3)
  - MALIGNANT FIBROUS HISTIOCYTOMA [None]
  - SEPSIS [None]
  - SKIN GRAFT INFECTION [None]
